FAERS Safety Report 10146196 (Version 2)
Quarter: 2014Q2

REPORT INFORMATION
  Report Type: Spontaneous
  Country: US (occurrence: US)
  Receive Date: 20140501
  Receipt Date: 20140609
  Transmission Date: 20141212
  Serious: No
  Sender: FDA-Public Use
  Company Number: US-009507513-1405USA000180

PATIENT
  Sex: Male
  Weight: 104.31 kg

DRUGS (7)
  1. CLARITIN-D-24 [Suspect]
     Indication: RHINORRHOEA
     Dosage: UNK, UNKNOWN
     Route: 048
  2. CLARITIN-D-24 [Suspect]
     Indication: EYE PRURITUS
  3. METOPROLOL [Concomitant]
     Indication: PRODUCT USED FOR UNKNOWN INDICATION
     Dosage: 25 MG, UNKNOWN
  4. POTASSIUM (UNSPECIFIED) [Concomitant]
     Indication: BLOOD POTASSIUM DECREASED
     Dosage: 20 MEQ, UNKNOWN
  5. HYDROCHLOROTHIAZIDE (+) LISINOPRIL [Concomitant]
     Indication: HYPERTENSION
     Dosage: UNK, UNKNOWN
  6. AMLODIPINE BESYLATE [Concomitant]
     Indication: HYPERTENSION
     Dosage: UNK, UNKNOWN
  7. COMBIGAN [Concomitant]
     Indication: INTRAOCULAR PRESSURE INCREASED

REACTIONS (3)
  - Dizziness [Not Recovered/Not Resolved]
  - Off label use [Unknown]
  - Drug ineffective [Unknown]
